FAERS Safety Report 17755345 (Version 1)
Quarter: 2020Q2

REPORT INFORMATION
  Report Type: Spontaneous
  Country: US (occurrence: US)
  Receive Date: 20200506
  Receipt Date: 20200506
  Transmission Date: 20200714
  Serious: Yes (Death, Life-Threatening, Hospitalization, Disabling, Other)
  Sender: FDA-Public Use
  Company Number: None

PATIENT
  Age: 87 Year
  Sex: Female
  Weight: 90.72 kg

DRUGS (1)
  1. XARELTO [Suspect]
     Active Substance: RIVAROXABAN
     Indication: MITRAL VALVE PROLAPSE
     Dosage: ?          QUANTITY:1 PILL;?
     Route: 048
     Dates: start: 20181109, end: 20181225

REACTIONS (1)
  - Small intestinal haemorrhage [None]

NARRATIVE: CASE EVENT DATE: 20181109
